FAERS Safety Report 23925061 (Version 1)
Quarter: 2024Q2

REPORT INFORMATION
  Report Type: Spontaneous
  Country: GB (occurrence: GB)
  Receive Date: 20240531
  Receipt Date: 20240531
  Transmission Date: 20240716
  Serious: Yes (Hospitalization, Other)
  Sender: FDA-Public Use
  Company Number: None

PATIENT
  Age: 74 Year
  Sex: Male

DRUGS (3)
  1. METHOTREXATE SODIUM [Interacting]
     Active Substance: METHOTREXATE SODIUM
     Indication: Rheumatoid arthritis
     Dosage: 12.5 MG, 1X WEEKLY
     Route: 058
     Dates: start: 2018, end: 20240417
  2. METHOTREXATE SODIUM [Interacting]
     Active Substance: METHOTREXATE SODIUM
     Dosage: 12.5 MG, 1X WEEKLY
     Route: 058
     Dates: start: 20240425, end: 20240429
  3. TRIMETHOPRIM [Interacting]
     Active Substance: TRIMETHOPRIM
     Indication: Urinary tract infection
     Dosage: 200 MG, 2X/DAY
     Dates: start: 20240418, end: 20240424

REACTIONS (3)
  - Drug interaction [Recovered/Resolved]
  - Pancytopenia [Recovered/Resolved]
  - Off label use [Unknown]

NARRATIVE: CASE EVENT DATE: 20180101
